FAERS Safety Report 16660486 (Version 5)
Quarter: 2020Q1

REPORT INFORMATION
  Report Type: Report from Study
  Country: CA (occurrence: CA)
  Receive Date: 20190802
  Receipt Date: 20200327
  Transmission Date: 20200409
  Serious: Yes (Other)
  Sender: FDA-Public Use
  Company Number: CA-ROCHE-2366026

PATIENT
  Age: 29 Year
  Sex: Female

DRUGS (13)
  1. TYLENOL [Concomitant]
     Active Substance: ACETAMINOPHEN
     Indication: HEADACHE
  2. GRAVOL [Concomitant]
     Active Substance: DIMENHYDRINATE
     Route: 065
  3. ACYCLOVIR [ACICLOVIR] [Concomitant]
     Active Substance: ACYCLOVIR
     Route: 065
  4. CANNABIS [Concomitant]
     Active Substance: CANNABIS SATIVA SUBSP. INDICA TOP
  5. FENTANYL. [Concomitant]
     Active Substance: FENTANYL
     Indication: PAIN
     Dosage: 37 MCG/HR PATCH EVERY 3 DAYS
     Route: 065
  6. ZOPLICONE [Concomitant]
     Active Substance: ZOPICLONE
     Dosage: SOMETIMES HALF THE TABLET
     Route: 065
  7. LYRICA [Concomitant]
     Active Substance: PREGABALIN
     Indication: PAIN
     Route: 065
  8. CHAMPIX [Concomitant]
     Active Substance: VARENICLINE TARTRATE
     Route: 065
  9. BENADRYL [Concomitant]
     Active Substance: DIPHENHYDRAMINE HYDROCHLORIDE
  10. CLONAZEPAM. [Concomitant]
     Active Substance: CLONAZEPAM
     Route: 065
  11. OCREVUS [Suspect]
     Active Substance: OCRELIZUMAB
     Indication: RELAPSING-REMITTING MULTIPLE SCLEROSIS
     Dosage: 300 MG AT DAY 0 AND 14, THEN 600 MG EVERY 6 MONTH
     Route: 042
     Dates: start: 20190220, end: 201903
  12. OCREVUS [Suspect]
     Active Substance: OCRELIZUMAB
     Dosage: SUBSEQUENT DOSE ON: 04/OCT/2019
     Route: 042
  13. SYNTHROID [Concomitant]
     Active Substance: LEVOTHYROXINE SODIUM
     Route: 065
     Dates: start: 20190115

REACTIONS (26)
  - Anogenital warts [Not Recovered/Not Resolved]
  - Nasal cyst [Not Recovered/Not Resolved]
  - Mood swings [Recovering/Resolving]
  - Papilloma viral infection [Not Recovered/Not Resolved]
  - Skin papilloma [Not Recovered/Not Resolved]
  - Balance disorder [Unknown]
  - Eye irritation [Unknown]
  - Infusion related reaction [Not Recovered/Not Resolved]
  - Papilloma viral infection [Unknown]
  - Urinary tract infection [Not Recovered/Not Resolved]
  - Fatigue [Unknown]
  - Stress [Unknown]
  - Insomnia [Unknown]
  - Pain [Recovering/Resolving]
  - Oral herpes [Unknown]
  - Lacrimation increased [Unknown]
  - Pharyngitis [Unknown]
  - Dermatitis contact [Not Recovered/Not Resolved]
  - Sensory disturbance [Unknown]
  - Headache [Unknown]
  - Vomiting [Unknown]
  - Dizziness [Unknown]
  - Oral pain [Not Recovered/Not Resolved]
  - Decreased appetite [Unknown]
  - Frustration tolerance decreased [Unknown]
  - Fall [Unknown]

NARRATIVE: CASE EVENT DATE: 20190220
